FAERS Safety Report 13522251 (Version 1)
Quarter: 2017Q2

REPORT INFORMATION
  Report Type: Spontaneous
  Country: US (occurrence: US)
  Receive Date: 20170508
  Receipt Date: 20170508
  Transmission Date: 20170830
  Serious: No
  Sender: FDA-Public Use
  Company Number: US-GLAXOSMITHKLINE-US2017064792

PATIENT
  Sex: Male

DRUGS (1)
  1. FLOVENT [Suspect]
     Active Substance: FLUTICASONE PROPIONATE
     Indication: OESOPHAGITIS
     Dosage: UNK, U
     Route: 048

REACTIONS (7)
  - Wrong technique in product usage process [Unknown]
  - Device leakage [Unknown]
  - Product use in unapproved indication [Unknown]
  - Device use error [Unknown]
  - Incorrect route of drug administration [Unknown]
  - Off label use [Unknown]
  - Underdose [Unknown]
